FAERS Safety Report 4301589-3 (Version None)
Quarter: 2004Q1

REPORT INFORMATION
  Report Type: 
  Country: None (occurrence: None)
  Receive Date: 20040219
  Receipt Date: 20040210
  Transmission Date: 20041129
  Serious: Yes (Life-Threatening)
  Sender: FDA-Public Use
  Company Number: IT-JNJFOC-20040202213

PATIENT
  Age: 102 Year
  Sex: Female

DRUGS (2)
  1. CONTRAMAL      (TRAMADOL HYDROCHLORIDE) DROPS [Suspect]
     Indication: PAIN
     Dosage: 20 DOSE (S), ORAL
     Route: 048
     Dates: start: 20040113, end: 20040113
  2. PARACETAMOL (PARACETAMOL) [Concomitant]

REACTIONS (1)
  - STUPOR [None]
